FAERS Safety Report 5470978-6 (Version None)
Quarter: 2007Q3

REPORT INFORMATION
  Report Type: 
  Country: None (occurrence: None)
  Receive Date: 20070928
  Receipt Date: 20070927
  Transmission Date: 20080115
  Serious: Yes (Hospitalization, Other)
  Sender: FDA-Public Use
  Company Number: A0331252A

PATIENT
  Age: 82 Year
  Sex: Male
  Weight: 70.75 kg

DRUGS (18)
  1. AVANDIA [Suspect]
     Route: 048
     Dates: start: 19991219, end: 20000317
  2. GLYBURIDE [Concomitant]
     Dosage: 5MG TWICE PER DAY
  3. HYZAAR [Concomitant]
  4. HYTRIN [Concomitant]
     Dosage: 5MG PER DAY
  5. CELEBREX [Concomitant]
     Dosage: 200MG PER DAY
  6. LOPID [Concomitant]
     Dosage: 600MG PER DAY
  7. PRILOSEC [Concomitant]
     Dosage: 20MG TWICE PER DAY
  8. LANOXIN [Concomitant]
     Dosage: 1TAB PER DAY
     Dates: start: 20000201
  9. IBUPROFEN [Concomitant]
     Dosage: 600MG PER DAY
     Dates: start: 19991224, end: 19991229
  10. OXYCODONE HCL [Concomitant]
     Dates: start: 19991224
  11. OXYCONTIN [Concomitant]
     Dosage: 10MG PER DAY
     Dates: start: 19991224, end: 19991229
  12. VIOXX [Concomitant]
     Dates: start: 19991229
  13. BENTYL [Concomitant]
     Dates: start: 20000111
  14. IMODIUM [Concomitant]
     Dates: start: 20000111
  15. COZAAR [Concomitant]
     Dates: start: 20000307, end: 20000317
  16. GLYNASE [Concomitant]
     Dosage: 6MG TWICE PER DAY
     Dates: end: 20000208
  17. GLYNASE [Concomitant]
     Dosage: 3MG TWICE PER DAY
     Dates: start: 20000208, end: 20000317
  18. GLYNASE [Concomitant]
     Dosage: 6MG PER DAY
     Dates: start: 20000317

REACTIONS (29)
  - ANAEMIA [None]
  - AORTIC STENOSIS [None]
  - AORTIC VALVE INCOMPETENCE [None]
  - ATRIOVENTRICULAR BLOCK [None]
  - AZOTAEMIA [None]
  - CARDIAC DISORDER [None]
  - CARDIAC FAILURE CONGESTIVE [None]
  - CARDIAC VALVE DISEASE [None]
  - COUGH [None]
  - DIZZINESS [None]
  - DYSPNOEA [None]
  - DYSPNOEA EXERTIONAL [None]
  - FATIGUE [None]
  - HYPOGLYCAEMIA [None]
  - LEFT VENTRICULAR HYPERTROPHY [None]
  - LOSS OF CONSCIOUSNESS [None]
  - MITRAL VALVE INCOMPETENCE [None]
  - OEDEMA PERIPHERAL [None]
  - PANCYTOPENIA [None]
  - PNEUMONIA [None]
  - PULMONARY HYPERTENSION [None]
  - PULMONARY OEDEMA [None]
  - RALES [None]
  - RENAL DISORDER [None]
  - RENAL FAILURE [None]
  - RESPIRATORY FAILURE [None]
  - TEMPERATURE INTOLERANCE [None]
  - TRICUSPID VALVE INCOMPETENCE [None]
  - WEIGHT INCREASED [None]
